FAERS Safety Report 9886349 (Version 3)
Quarter: 2014Q2

REPORT INFORMATION
  Report Type: Spontaneous
  Country: IT (occurrence: IT)
  Receive Date: 20140210
  Receipt Date: 20140401
  Transmission Date: 20141212
  Serious: Yes (Hospitalization)
  Sender: FDA-Public Use
  Company Number: IT-WATSON-2014-02097

PATIENT
  Age: 61 Year
  Sex: Male

DRUGS (8)
  1. METFORMIN (UNKNOWN) [Suspect]
     Indication: DIABETES MELLITUS
     Dosage: 2000 MG, DAILY
     Route: 048
     Dates: start: 20130101, end: 20131206
  2. GLICLAZIDE (UNKNOWN) [Suspect]
     Indication: DIABETES MELLITUS
     Dosage: 100 MG, DAILY
     Route: 048
     Dates: start: 20130101, end: 20131206
  3. CARDIOASPIRIN [Concomitant]
     Indication: PRODUCT USED FOR UNKNOWN INDICATION
     Dosage: 100 MG, UNK
     Route: 065
     Dates: start: 20120101, end: 20131206
  4. PLAVIX [Concomitant]
     Indication: PRODUCT USED FOR UNKNOWN INDICATION
     Dosage: 75 MG, UNK
     Route: 048
     Dates: start: 20120101, end: 20131206
  5. NITRODERM MATRIX [Concomitant]
     Indication: PRODUCT USED FOR UNKNOWN INDICATION
     Dosage: 15 MG, DAILY
     Route: 062
     Dates: start: 20131123, end: 20131206
  6. RAMIPRIL [Concomitant]
     Indication: HYPERTENSION
     Dosage: 5 MG, UNK
     Route: 048
     Dates: start: 20120101, end: 20131206
  7. XIPOCOL [Concomitant]
     Indication: PRODUCT USED FOR UNKNOWN INDICATION
     Dosage: 20 MG, UNK
     Route: 048
     Dates: start: 20131123, end: 20131206
  8. CARVEDILOL [Concomitant]
     Indication: HYPERTENSION
     Dosage: 6.25 MG, UNK
     Route: 048
     Dates: start: 20120101, end: 20131206

REACTIONS (3)
  - Hypoglycaemia [Recovered/Resolved]
  - Aphasia [Recovered/Resolved]
  - Slow response to stimuli [Recovered/Resolved]
